FAERS Safety Report 5154219-5 (Version None)
Quarter: 2006Q4

REPORT INFORMATION
  Report Type: 
  Country: None (occurrence: None)
  Receive Date: 20061114
  Receipt Date: 20061030
  Transmission Date: 20070319
  Serious: Yes (Hospitalization)
  Sender: FDA-Public Use
  Company Number: GXKR2006TR06776

PATIENT
  Age: 17 Year
  Sex: Female

DRUGS (1)
  1. ISONIAZID [Suspect]
     Dosage: 2.5 MG, ONCE/SINGLE

REACTIONS (9)
  - CONVULSION [None]
  - HEPATITIS TOXIC [None]
  - LOSS OF CONSCIOUSNESS [None]
  - METABOLIC ACIDOSIS [None]
  - MYDRIASIS [None]
  - NAUSEA [None]
  - OVERDOSE [None]
  - PAINFUL RESPONSE TO NORMAL STIMULI [None]
  - VOMITING [None]
